FAERS Safety Report 12463767 (Version 1)
Quarter: 2016Q2

REPORT INFORMATION
  Report Type: Spontaneous
  Country: US (occurrence: None)
  Receive Date: 20160613
  Receipt Date: 20160613
  Transmission Date: 20160815
  Serious: No
  Sender: FDA-Public Use
  Company Number: None

PATIENT
  Age: 60 Year
  Sex: Male
  Weight: 91.17 kg

DRUGS (1)
  1. SILDENAFIL 20MG [Suspect]
     Active Substance: SILDENAFIL
     Indication: ORGANIC ERECTILE DYSFUNCTION
     Route: 048
     Dates: start: 20150611, end: 20150813

REACTIONS (1)
  - Headache [None]

NARRATIVE: CASE EVENT DATE: 20160509
